FAERS Safety Report 20048937 (Version 8)
Quarter: 2022Q2

REPORT INFORMATION
  Report Type: Report from Study
  Country: GB (occurrence: GB)
  Receive Date: 20211109
  Receipt Date: 20220511
  Transmission Date: 20220720
  Serious: Yes (Other)
  Sender: FDA-Public Use
  Company Number: GB-SAMSUNG BIOEPIS-SB-2021-17555

PATIENT
  Age: 48 Year
  Sex: Female

DRUGS (4)
  1. METHOTREXATE [Suspect]
     Active Substance: METHOTREXATE
     Indication: Product used for unknown indication
     Dosage: UNK
     Route: 065
  2. METHOTREXATE [Suspect]
     Active Substance: METHOTREXATE
     Dosage: UNK
     Route: 065
  3. IMRALDI [Suspect]
     Active Substance: ADALIMUMAB
     Indication: Psoriatic arthropathy
     Dosage: 40 MILLIGRAM, CYCLE (40 MG, ONCE EVERY 2 WEEKS)
     Route: 058
     Dates: start: 20210415
  4. ETANERCEPT [Concomitant]
     Active Substance: ETANERCEPT
     Indication: Psoriatic arthropathy
     Dosage: 50 MILLIGRAM, QW (50MG, WEEKLY)
     Route: 058
     Dates: start: 20181005

REACTIONS (7)
  - Pain [Unknown]
  - Gait disturbance [Not Recovered/Not Resolved]
  - Diverticulitis [Unknown]
  - Nausea [Unknown]
  - Fatigue [Unknown]
  - Product storage error [Unknown]
  - Product dose omission issue [Unknown]
